FAERS Safety Report 8201774-4 (Version None)
Quarter: 2012Q1

REPORT INFORMATION
  Report Type: 
  Country: None (occurrence: None)
  Receive Date: 20120312
  Receipt Date: 20120302
  Transmission Date: 20120608
  Serious: Yes (Other)
  Sender: FDA-Public Use
  Company Number: JP-ABBOTT-12P-087-0913046-00

PATIENT
  Sex: Female
  Weight: 48 kg

DRUGS (41)
  1. PENTASA [Suspect]
     Indication: CROHN'S DISEASE
     Route: 048
     Dates: start: 20110419, end: 20110803
  2. LACTOMIN [Concomitant]
     Indication: CROHN'S DISEASE
     Route: 048
     Dates: start: 20110419, end: 20110803
  3. SODIUM BICARBONATE/ANHYDROUS MONOBASIC SODIUM PHOSPHATE [Concomitant]
     Indication: CONSTIPATION
     Route: 061
     Dates: start: 20110405, end: 20110508
  4. OXETHAZAINE [Concomitant]
     Indication: ABDOMINAL PAIN UPPER
     Route: 048
     Dates: start: 20110509, end: 20110509
  5. AZULENE [Concomitant]
     Indication: DERMATITIS
     Route: 061
     Dates: start: 20110330, end: 20110404
  6. SCOPOLAMINE BUTYLBROMIDE [Concomitant]
     Indication: ABDOMINAL PAIN
     Dates: start: 20110509, end: 20110509
  7. KETOPROFEN [Concomitant]
     Indication: POSTOPERATIVE CARE
     Route: 061
     Dates: start: 20110506, end: 20110508
  8. FERROUS FUMARATE [Concomitant]
     Indication: ANAEMIA
     Dosage: DAILY
     Route: 048
     Dates: start: 20110518, end: 20110523
  9. CARBAZOCHROME SODIUM SULFONATE HYDRATE [Concomitant]
     Indication: POSTOPERATIVE CARE
     Dates: start: 20110428, end: 20110501
  10. ALFACALCIDOL [Concomitant]
     Indication: SYSTEMIC LUPUS ERYTHEMATOSUS
     Route: 048
  11. DIPYRIDAMOLE [Concomitant]
     Indication: SYSTEMIC LUPUS ERYTHEMATOSUS
     Route: 048
  12. MALTOSE/LACTATED RINGER'S SOLUTION [Concomitant]
     Indication: PREOPERATIVE CARE
     Dates: start: 20110428, end: 20110501
  13. CEFMETAZOLE SODIUM [Concomitant]
     Indication: POSTOPERATIVE CARE
     Dates: start: 20110428, end: 20110501
  14. DEXTROSE [Concomitant]
     Indication: ANAEMIA
     Dates: start: 20110507, end: 20110519
  15. METOCLOPRAMIDE [Concomitant]
     Indication: NAUSEA
     Route: 048
     Dates: start: 20110507, end: 20110508
  16. PREDNISOLONE [Concomitant]
     Indication: SYSTEMIC LUPUS ERYTHEMATOSUS
     Route: 048
  17. ETIZOLAM [Concomitant]
     Indication: INSOMNIA
     Route: 048
     Dates: start: 20110506, end: 20110509
  18. ANTIBIOTICS-RESISTANT LACTIC ACID BACTERIAE [Concomitant]
     Indication: DRUG THERAPY
     Route: 048
     Dates: start: 20110507, end: 20110508
  19. MAGNESIUM CITRATE [Concomitant]
     Indication: PREOPERATIVE CARE
     Route: 048
     Dates: start: 20110427, end: 20110427
  20. SENNOSIDE [Concomitant]
     Indication: PREOPERATIVE CARE
     Route: 048
     Dates: start: 20110427, end: 20110427
  21. HUMIRA [Suspect]
     Route: 058
     Dates: start: 20110511, end: 20110511
  22. FAMOTIDINE [Concomitant]
     Indication: POSTOPERATIVE CARE
     Dates: start: 20110507, end: 20110516
  23. ASCORBIC ACID [Concomitant]
     Indication: POSTOPERATIVE CARE
     Dates: start: 20110507, end: 20110515
  24. TRIBENOSIDE/LIDOCAINE [Concomitant]
     Indication: PRODUCT USED FOR UNKNOWN INDICATION
     Route: 061
     Dates: start: 20110330, end: 20110906
  25. HUMIRA [Suspect]
     Indication: CROHN'S DISEASE
     Route: 058
     Dates: start: 20110427, end: 20110427
  26. LOPERAMIDE HYDROCHLORIDE [Concomitant]
     Indication: DIARRHOEA
     Dosage: DAILY
     Route: 048
     Dates: start: 20110510, end: 20110608
  27. SALINE [Concomitant]
     Indication: POSTOPERATIVE CARE
     Dates: start: 20110508, end: 20110509
  28. SODIUM BICARBONATE/ANYHYDROUS MONOBASIC SODIUM PHOSPHATE [Concomitant]
     Indication: PREOPERATIVE CARE
     Route: 054
     Dates: start: 20110428, end: 20110428
  29. DIAZEPAM [Concomitant]
     Indication: PREOPERATIVE CARE
     Route: 048
     Dates: start: 20110428, end: 20110428
  30. HUMIRA [Suspect]
     Route: 058
     Dates: start: 20110626, end: 20110906
  31. SOLITA-T NO.3 [Concomitant]
     Indication: POSTOPERATIVE CARE
     Dates: start: 20110428, end: 20110509
  32. FERRIC OXIDE SACCHARATED [Concomitant]
     Indication: ANAEMIA
     Dates: start: 20110507, end: 20110519
  33. ATENOLOL [Concomitant]
     Indication: SYSTEMIC LUPUS ERYTHEMATOSUS
     Route: 048
  34. TACROLIMUS [Concomitant]
     Indication: SYSTEMIC LUPUS ERYTHEMATOSUS
     Route: 048
  35. CANDESARTAN CILEXETIL [Concomitant]
     Indication: SYSTEMIC LUPUS ERYTHEMATOSUS
     Route: 048
     Dates: start: 20110725
  36. BROTIZOLAM [Concomitant]
     Indication: PREOPERATIVE CARE
     Route: 048
     Dates: start: 20110427, end: 20110427
  37. FAMOTIDINE [Concomitant]
     Indication: ABDOMINAL PAIN UPPER
     Route: 048
     Dates: start: 20110509, end: 20110608
  38. LOXOPROFEN SODIUM HYDRATE [Concomitant]
     Indication: POSTOPERATIVE CARE
     Dosage: TOTAL 660 MG
     Route: 048
     Dates: start: 20110430, end: 20110430
  39. TRANEXAMIC ACID [Concomitant]
     Indication: POSTOPERATIVE CARE
     Dates: start: 20110428, end: 20110501
  40. VITAMIN B COMPLEX CAP [Concomitant]
     Indication: POSTOPERATIVE CARE
     Dates: start: 20110428, end: 20110515
  41. MINOCYCLINE HYDROCHLORIDE [Concomitant]
     Indication: PRODUCT USED FOR UNKNOWN INDICATION
     Route: 048
     Dates: start: 20110330, end: 20110504

REACTIONS (4)
  - ANAL FISTULA [None]
  - ALOPECIA [None]
  - RASH [None]
  - RENAL IMPAIRMENT [None]
